FAERS Safety Report 6137964-4 (Version None)
Quarter: 2009Q1

REPORT INFORMATION
  Report Type: 
  Country: None (occurrence: None)
  Receive Date: 20090331
  Receipt Date: 20090319
  Transmission Date: 20090719
  Serious: Yes (Other)
  Sender: FDA-Public Use
  Company Number: FI-PFIZER INC-2008154884

PATIENT

DRUGS (3)
  1. LYRICA [Suspect]
     Indication: NECK PAIN
     Dosage: UNK
     Route: 048
     Dates: start: 20080901, end: 20081001
  2. MICARDIS HCT [Concomitant]
     Indication: HYPERTENSION
     Dosage: UNK
     Route: 048
  3. SERETIDE [Concomitant]
     Indication: ASTHMA
     Dosage: UNK

REACTIONS (1)
  - CONTUSION [None]
